FAERS Safety Report 4892801-0 (Version None)
Quarter: 2005Q4

REPORT INFORMATION
  Report Type: 
  Country: None (occurrence: None)
  Receive Date: 20051220
  Receipt Date: 20050922
  Transmission Date: 20060501
  Serious: Yes (Other)
  Sender: FDA-Public Use
  Company Number: 418838

PATIENT
  Age: 64 Year
  Sex: Female
  Weight: 66.2 kg

DRUGS (1)
  1. BONIVA [Suspect]
     Indication: OSTEOPENIA
     Dosage: ORAL
     Route: 048
     Dates: start: 20050922, end: 20050926

REACTIONS (5)
  - ABDOMINAL PAIN UPPER [None]
  - ARTHRITIS [None]
  - DIARRHOEA [None]
  - HEADACHE [None]
  - PYREXIA [None]
